FAERS Safety Report 6279885-2 (Version None)
Quarter: 2009Q3

REPORT INFORMATION
  Report Type: 
  Country: None (occurrence: None)
  Receive Date: 20090723
  Receipt Date: 20090720
  Transmission Date: 20100115
  Serious: Yes (Life-Threatening)
  Sender: FDA-Public Use
  Company Number: PHEH2009US07796

PATIENT

DRUGS (1)
  1. TEGRETOL [Suspect]
     Dosage: UNK

REACTIONS (1)
  - TERMINAL STATE [None]
